FAERS Safety Report 11239956 (Version 1)
Quarter: 2015Q3

REPORT INFORMATION
  Report Type: Spontaneous
  Country: US (occurrence: US)
  Receive Date: 20150706
  Receipt Date: 20150706
  Transmission Date: 20151125
  Serious: No
  Sender: FDA-Public Use
  Company Number: US-JNJFOC-20150621685

PATIENT
  Age: 78 Year
  Sex: Female
  Weight: 56.25 kg

DRUGS (2)
  1. REMICADE [Suspect]
     Active Substance: INFLIXIMAB
     Indication: RHEUMATOID ARTHRITIS
     Route: 042
  2. REMICADE [Suspect]
     Active Substance: INFLIXIMAB
     Indication: RHEUMATOID ARTHRITIS
     Route: 042
     Dates: start: 1996

REACTIONS (16)
  - Feeling hot [Unknown]
  - Swelling [Unknown]
  - Drug specific antibody present [Unknown]
  - Inflammation [Unknown]
  - Dyspnoea [Unknown]
  - Cough [Unknown]
  - Neoplasm skin [Unknown]
  - Chromaturia [Unknown]
  - Arthropathy [Not Recovered/Not Resolved]
  - Incorrect dose administered [Recovered/Resolved]
  - Weight increased [Not Recovered/Not Resolved]
  - Pruritus [Unknown]
  - Rheumatoid arthritis [Unknown]
  - Upper-airway cough syndrome [Unknown]
  - Pain [Unknown]
  - Nasopharyngitis [Unknown]

NARRATIVE: CASE EVENT DATE: 20150627
